FAERS Safety Report 9884221 (Version 3)
Quarter: 2014Q1

REPORT INFORMATION
  Report Type: Spontaneous
  Country: US (occurrence: US)
  Receive Date: 20140210
  Receipt Date: 20140321
  Transmission Date: 20141002
  Serious: Yes (Other)
  Sender: FDA-Public Use
  Company Number: US-SA-2014SA014524

PATIENT
  Age: 65 Year
  Sex: Female

DRUGS (5)
  1. APIDRA SOLOSTAR [Suspect]
     Indication: TYPE 2 DIABETES MELLITUS
     Dosage: 15-20 UNITS SLIDING SCALE.
     Route: 065
  2. LANTUS SOLOSTAR [Suspect]
     Indication: TYPE 2 DIABETES MELLITUS
     Dosage: DOSE:40 UNIT(S)
     Route: 051
  3. LEVEMIR [Suspect]
     Indication: PRODUCT USED FOR UNKNOWN INDICATION
     Route: 065
  4. SOLOSTAR [Concomitant]
     Indication: TYPE 2 DIABETES MELLITUS
  5. SOLOSTAR [Concomitant]
     Indication: TYPE 2 DIABETES MELLITUS

REACTIONS (4)
  - Eye disorder [Unknown]
  - Visual acuity reduced [Unknown]
  - Injection site urticaria [Unknown]
  - Blood glucose increased [Unknown]
